FAERS Safety Report 8507946-3 (Version None)
Quarter: 2012Q3

REPORT INFORMATION
  Report Type: 
  Country: None (occurrence: None)
  Receive Date: 20120713
  Receipt Date: 20120705
  Transmission Date: 20120928
  Serious: Yes (Hospitalization, Other)
  Sender: FDA-Public Use
  Company Number: US-BAYER-2012-011733

PATIENT
  Age: 24 Year
  Sex: Female
  Weight: 77.098 kg

DRUGS (5)
  1. DROSPIRENONE AND ETHINYL ESTRADIOL [Suspect]
     Dosage: UNK
     Dates: start: 20080617, end: 20091207
  2. KETOROLAC TROMETHAMINE [Concomitant]
     Indication: PAIN
     Dosage: 10 MG, EVERY 6 HOURS AS REQUIRED
  3. ANALGESICS [Concomitant]
  4. NICOTINE [Concomitant]
  5. ALBUTEROL [Concomitant]

REACTIONS (6)
  - ANHEDONIA [None]
  - RENAL VEIN THROMBOSIS [None]
  - PULMONARY EMBOLISM [None]
  - BACK PAIN [None]
  - ANXIETY [None]
  - DYSPNOEA [None]
